FAERS Safety Report 19583180 (Version 1)
Quarter: 2021Q3

REPORT INFORMATION
  Report Type: Spontaneous
  Country: NL (occurrence: NL)
  Receive Date: 20210720
  Receipt Date: 20210720
  Transmission Date: 20211014
  Serious: Yes (Hospitalization)
  Sender: FDA-Public Use
  Company Number: NL-TEVA-2021-NL-1933027

PATIENT
  Age: 49 Year
  Sex: Female
  Weight: 64 kg

DRUGS (1)
  1. CELECOXIB CAPSULE 100MG / BRAND NAME NOT SPECIFIED [Suspect]
     Active Substance: CELECOXIB
     Indication: ARTHRITIS
     Dosage: 200 MILLIGRAM DAILY; 2 X A DAY 1 (I ONLY USED 1!):THERAPY END DATE :ASKU
     Dates: start: 20210702

REACTIONS (6)
  - Palpitations [Recovered/Resolved]
  - Dizziness [Recovered/Resolved]
  - Panic reaction [Recovered/Resolved]
  - Anxiety [Recovered/Resolved]
  - Presyncope [Recovered/Resolved]
  - Sleep disorder [Recovered/Resolved]

NARRATIVE: CASE EVENT DATE: 20210702
